FAERS Safety Report 11941637 (Version 1)
Quarter: 2016Q1

REPORT INFORMATION
  Report Type: Spontaneous
  Country: JP (occurrence: JP)
  Receive Date: 20160123
  Receipt Date: 20160123
  Transmission Date: 20160526
  Serious: Yes (Hospitalization)
  Sender: FDA-Public Use
  Company Number: JP-ACCORD-037138

PATIENT
  Sex: Female

DRUGS (3)
  1. METHOTREXATE [Suspect]
     Active Substance: METHOTREXATE
     Indication: RHEUMATOID ARTHRITIS
     Dates: start: 2005
  2. ADALIMUMAB [Concomitant]
     Active Substance: ADALIMUMAB
     Dates: start: 2009
  3. PREDNISOLONE. [Concomitant]
     Active Substance: PREDNISOLONE

REACTIONS (3)
  - Epstein-Barr virus infection [Unknown]
  - Respiratory depression [Unknown]
  - Central nervous system lymphoma [Recovering/Resolving]
